FAERS Safety Report 8016372-5 (Version None)
Quarter: 2011Q4

REPORT INFORMATION
  Report Type: 
  Country: None (occurrence: None)
  Receive Date: 20111230
  Receipt Date: 20111227
  Transmission Date: 20120403
  Serious: Yes (Death, Hospitalization)
  Sender: FDA-Public Use
  Company Number: US-CELGENEUS-163-20785-11081457

PATIENT
  Sex: Female

DRUGS (6)
  1. THALOMID [Suspect]
     Dosage: 50 MILLIGRAM
     Route: 048
     Dates: start: 20110630, end: 20110816
  2. TEMODAR [Concomitant]
     Route: 065
     Dates: start: 20101101, end: 20110101
  3. TRILEPTAL [Concomitant]
     Route: 065
     Dates: start: 20100101, end: 20110101
  4. AVASTIN [Concomitant]
     Route: 065
     Dates: start: 20101101, end: 20110501
  5. IRINOTECAN HCL [Concomitant]
     Route: 065
     Dates: start: 20110501, end: 20110801
  6. ZOFRAN [Concomitant]
     Route: 065
     Dates: start: 20100101, end: 20110101

REACTIONS (2)
  - PNEUMONIA [None]
  - BRAIN NEOPLASM MALIGNANT [None]
